FAERS Safety Report 6274489-X (Version None)
Quarter: 2009Q3

REPORT INFORMATION
  Report Type: 
  Country: None (occurrence: None)
  Receive Date: 20090720
  Receipt Date: 20090710
  Transmission Date: 20100115
  Serious: Yes (Other)
  Sender: FDA-Public Use
  Company Number: US-ABBOTT-09P-163-0584908-00

PATIENT
  Sex: Female

DRUGS (3)
  1. HUMIRA [Suspect]
     Indication: ARTHRITIS
     Dates: start: 20030602, end: 20031110
  2. HUMIRA [Suspect]
     Dates: start: 20031110, end: 20050901
  3. HUMIRA [Suspect]

REACTIONS (12)
  - BREAST CYST [None]
  - CYST [None]
  - FALL [None]
  - GAIT DISTURBANCE [None]
  - HYPOAESTHESIA [None]
  - HYPOREFLEXIA [None]
  - MENOPAUSE [None]
  - MONONEUROPATHY [None]
  - MUSCLE ATROPHY [None]
  - MUSCULAR WEAKNESS [None]
  - OVARIAN CYST [None]
  - PNEUMONIA [None]
